FAERS Safety Report 24229809 (Version 1)
Quarter: 2024Q3

REPORT INFORMATION
  Report Type: Report from Study
  Country: CA (occurrence: CA)
  Receive Date: 20240820
  Receipt Date: 20240820
  Transmission Date: 20241016
  Serious: Yes (Hospitalization, Other)
  Sender: GILEAD
  Company Number: CA-GILEAD-2024-0684574

PATIENT
  Sex: Female

DRUGS (1)
  1. BREXUCABTAGENE AUTOLEUCEL [Suspect]
     Active Substance: BREXUCABTAGENE AUTOLEUCEL
     Indication: B-cell type acute leukaemia
     Dosage: UNK
     Route: 065
     Dates: start: 20240709, end: 20240709

REACTIONS (1)
  - Critical illness [Not Recovered/Not Resolved]
